FAERS Safety Report 6380693-2 (Version None)
Quarter: 2009Q3

REPORT INFORMATION
  Report Type: 
  Country: None (occurrence: None)
  Receive Date: 20090929
  Receipt Date: 20090921
  Transmission Date: 20100115
  Serious: Yes (Hospitalization)
  Sender: FDA-Public Use
  Company Number: US-KINGPHARMUSA00001-K200901164

PATIENT
  Age: 71 Year
  Sex: Female

DRUGS (5)
  1. ALTACE [Suspect]
     Indication: HYPERTENSION
     Dosage: 5 MG, QD
     Route: 048
     Dates: end: 20090828
  2. HYDROCHLOROTHIAZIDE [Suspect]
     Indication: HYPERTENSION
     Dosage: 25 MG, QD
     Route: 048
     Dates: start: 20090701, end: 20090828
  3. LANSOX [Concomitant]
     Dosage: UNK
     Route: 048
     Dates: start: 20060101, end: 20090828
  4. NORVASC [Concomitant]
     Dosage: UNK
     Route: 048
     Dates: start: 20060101, end: 20090820
  5. ALLOPURINOL [Concomitant]
     Dosage: UNK
     Route: 048
     Dates: start: 20060101, end: 20090828

REACTIONS (5)
  - CONFUSIONAL STATE [None]
  - HYPOKALAEMIA [None]
  - HYPONATRAEMIA [None]
  - NAUSEA [None]
  - VOMITING [None]
